FAERS Safety Report 9004570 (Version 1)
Quarter: 2013Q1

REPORT INFORMATION
  Report Type: Report from Study
  Country: US (occurrence: US)
  Receive Date: 20130108
  Receipt Date: 20130108
  Transmission Date: 20140127
  Serious: Yes (Hospitalization)
  Sender: FDA-Public Use
  Company Number: US-ROCHE-1078630

PATIENT
  Sex: Female

DRUGS (5)
  1. PEG-INTERFERON ALFA 2A [Suspect]
     Indication: CHRONIC HEPATITIS C
     Route: 058
     Dates: start: 20120605
  2. PEG-INTERFERON ALFA 2A [Suspect]
     Route: 058
     Dates: start: 2006
  3. RIBAVIRIN [Suspect]
     Indication: CHRONIC HEPATITIS C
     Dosage: DAILY IN DIVIDED DOSES
     Route: 048
     Dates: start: 20120605
  4. RIBAVIRIN [Suspect]
     Route: 048
     Dates: start: 201208
  5. TELAPREVIR [Suspect]
     Indication: CHRONIC HEPATITIS C
     Route: 065
     Dates: start: 20120605

REACTIONS (23)
  - Headache [Unknown]
  - Nausea [Recovering/Resolving]
  - Myalgia [Not Recovered/Not Resolved]
  - Parosmia [Unknown]
  - Dysgeusia [Unknown]
  - Depression [Unknown]
  - Decreased appetite [Unknown]
  - Skin odour abnormal [Unknown]
  - Fatigue [Recovering/Resolving]
  - Anaemia [Recovering/Resolving]
  - Parosmia [Unknown]
  - Restlessness [Unknown]
  - Decreased appetite [Unknown]
  - Restlessness [Unknown]
  - Insomnia [Unknown]
  - Weight decreased [Unknown]
  - Feeling cold [Unknown]
  - Pruritus [Unknown]
  - Decreased appetite [Recovering/Resolving]
  - Weight increased [Unknown]
  - Hyponatraemia [Unknown]
  - Vertigo [Recovered/Resolved]
  - Blood pressure fluctuation [Recovered/Resolved]
